FAERS Safety Report 4913682-2 (Version None)
Quarter: 2006Q1

REPORT INFORMATION
  Report Type: 
  Country: None (occurrence: None)
  Receive Date: 20060216
  Receipt Date: 20060201
  Transmission Date: 20060701
  Serious: Yes (Hospitalization, Other)
  Sender: FDA-Public Use
  Company Number: PHHO2006JP02073

PATIENT
  Age: 66 Year
  Sex: Male

DRUGS (4)
  1. LOCHOL [Suspect]
     Indication: ANGINA PECTORIS
     Dosage: 20 MG, QD
     Route: 048
     Dates: start: 20051222, end: 20060126
  2. ASPIRIN [Concomitant]
     Indication: HYPERLIPIDAEMIA
     Route: 048
     Dates: start: 20051222
  3. CONIEL [Concomitant]
     Route: 048
     Dates: start: 20051222
  4. PANALDINE [Concomitant]
     Route: 048
     Dates: start: 20060116

REACTIONS (5)
  - ABASIA [None]
  - CORONARY ARTERY SURGERY [None]
  - LIVER FUNCTION TEST ABNORMAL [None]
  - MYALGIA [None]
  - RASH [None]
